FAERS Safety Report 17238916 (Version 3)
Quarter: 2020Q1

REPORT INFORMATION
  Report Type: Spontaneous
  Country: US (occurrence: US)
  Receive Date: 20200106
  Receipt Date: 20200319
  Transmission Date: 20200409
  Serious: No
  Sender: FDA-Public Use
  Company Number: US-SA-2019SA141421

PATIENT
  Age: 25 Year
  Sex: Female

DRUGS (4)
  1. ADMELOG [Suspect]
     Active Substance: INSULIN LISPRO
     Dosage: 15-16 UNITS 3 TIMES A DAY
     Route: 065
  2. LANTUS SOLOSTAR [Suspect]
     Active Substance: INSULIN GLARGINE
     Dosage: UNK
     Route: 065
  3. ADMELOG [Suspect]
     Active Substance: INSULIN LISPRO
     Dosage: 15 IU 3-4 TIMES DAILY
     Route: 065
  4. ADMELOG [Suspect]
     Active Substance: INSULIN LISPRO
     Dosage: 70 U, 15 UNITS PER MEAL
     Route: 065

REACTIONS (5)
  - Device issue [Unknown]
  - Device breakage [Unknown]
  - Product dose omission [Unknown]
  - Blood glucose increased [Unknown]
  - Device leakage [Unknown]
